FAERS Safety Report 14702906 (Version 9)
Quarter: 2018Q3

REPORT INFORMATION
  Report Type: Report from Study
  Country: None (occurrence: FR)
  Receive Date: 20180402
  Receipt Date: 20180730
  Transmission Date: 20181010
  Serious: Yes (Hospitalization)
  Sender: FDA-Public Use
  Company Number: FR-ABBVIE-18K-056-2295370-00

PATIENT
  Age: 61 Year
  Sex: Male

DRUGS (3)
  1. MODOPAR [Concomitant]
     Active Substance: BENSERAZIDE HYDROCHLORIDE\LEVODOPA
     Indication: PRODUCT USED FOR UNKNOWN INDICATION
     Dosage: AS NEEDED, 3X PER DAY MAXIMUM
  2. DUODOPA [Suspect]
     Active Substance: CARBIDOPA\LEVODOPA
     Indication: PARKINSON^S DISEASE
     Route: 050
     Dates: start: 20180301, end: 20180610
  3. STALEVO [Concomitant]
     Active Substance: CARBIDOPA\ENTACAPONE\LEVODOPA
     Indication: PRODUCT USED FOR UNKNOWN INDICATION

REACTIONS (13)
  - Stoma site hypergranulation [Not Recovered/Not Resolved]
  - Stoma site extravasation [Unknown]
  - Scar [Unknown]
  - Wound complication [Not Recovered/Not Resolved]
  - Weight decreased [Unknown]
  - Intestinal obstruction [Unknown]
  - Fibroma [Not Recovered/Not Resolved]
  - Hypotension [Unknown]
  - Nodule [Unknown]
  - Freezing phenomenon [Unknown]
  - Device issue [Unknown]
  - Asthenia [Unknown]
  - Diarrhoea [Recovered/Resolved]

NARRATIVE: CASE EVENT DATE: 2018
